FAERS Safety Report 6784394-8 (Version None)
Quarter: 2010Q2

REPORT INFORMATION
  Report Type: 
  Country: None (occurrence: None)
  Receive Date: 20100617
  Receipt Date: 20100602
  Transmission Date: 20101027
  Serious: Yes (Hospitalization, Other)
  Sender: FDA-Public Use
  Company Number: 013557

PATIENT
  Age: 69 Year
  Sex: Female

DRUGS (2)
  1. LEVETIRACETAM [Suspect]
     Dosage: (1000 MG)
  2. TEMOZOLOMIDE [Suspect]
     Dosage: (100 MG)
     Dates: end: 20081201

REACTIONS (3)
  - BRAIN ABSCESS [None]
  - PANCYTOPENIA [None]
  - SEPSIS [None]
